FAERS Safety Report 15160178 (Version 1)
Quarter: 2018Q3

REPORT INFORMATION
  Report Type: Spontaneous
  Country: US (occurrence: US)
  Receive Date: 20180718
  Receipt Date: 20180718
  Transmission Date: 20181010
  Serious: Yes (Hospitalization)
  Sender: FDA-Public Use
  Company Number: US-CELGENEUS-USA-20180704538

PATIENT
  Age: 47 Year
  Sex: Female

DRUGS (8)
  1. THALOMID [Suspect]
     Active Substance: THALIDOMIDE
     Indication: OFF LABEL USE
     Dosage: 300MG ? 200MG
     Route: 048
     Dates: start: 201305
  2. THALOMID [Suspect]
     Active Substance: THALIDOMIDE
     Dosage: 100MG ? 200MG
     Route: 048
     Dates: start: 201310
  3. THALOMID [Suspect]
     Active Substance: THALIDOMIDE
     Dosage: 100MG ? 50MG
     Route: 048
     Dates: start: 201704
  4. THALOMID [Suspect]
     Active Substance: THALIDOMIDE
     Dosage: 100MG ? 150MG
     Route: 048
     Dates: start: 201310
  5. THALOMID [Suspect]
     Active Substance: THALIDOMIDE
     Dosage: 100 MILLIGRAM
     Route: 048
     Dates: start: 201609
  6. THALOMID [Suspect]
     Active Substance: THALIDOMIDE
     Dosage: 100 MILLIGRAM
     Route: 048
     Dates: start: 201803
  7. THALOMID [Suspect]
     Active Substance: THALIDOMIDE
     Dosage: 50 MILLIGRAM
     Route: 048
     Dates: start: 20170829
  8. THALOMID [Suspect]
     Active Substance: THALIDOMIDE
     Indication: LEPROMATOUS LEPROSY
     Dosage: 200 MILLIGRAM
     Route: 048
     Dates: start: 201305

REACTIONS (2)
  - Chest pain [Recovered/Resolved]
  - Dyspnoea [Recovered/Resolved]

NARRATIVE: CASE EVENT DATE: 20180620
